FAERS Safety Report 7360230-6 (Version None)
Quarter: 2011Q1

REPORT INFORMATION
  Report Type: 
  Country: None (occurrence: None)
  Receive Date: 20110307
  Receipt Date: 20110222
  Transmission Date: 20110831
  Serious: Yes (Life-Threatening)
  Sender: FDA-Public Use
  Company Number: DSU-2010-03246

PATIENT
  Age: 80 Year
  Sex: Female
  Weight: 43 kg

DRUGS (3)
  1. UNIKALK FORTE (COLECALCIFEROL, CALCIUM)(COLECALCIFEROL, CALCIUM) [Concomitant]
  2. KALEORID (POTASSIUM CHLORIDE) (POTASSIUM CHLORIDE) [Concomitant]
  3. CHOLESTAGEL (COLESEVELAM HYDROCHLORIDE) (625 MILLIGRAM, TABLET) (COLES [Suspect]
     Indication: DIARRHOEA
     Dosage: 1875 MG (625 MG,TID), PER ORAL
     Route: 048
     Dates: start: 20100531, end: 20100602

REACTIONS (10)
  - WEIGHT DECREASED [None]
  - JAUNDICE [None]
  - HEPATIC FUNCTION ABNORMAL [None]
  - BLOOD BILIRUBIN INCREASED [None]
  - LIVER FUNCTION TEST ABNORMAL [None]
  - MALAISE [None]
  - DECREASED APPETITE [None]
  - ABDOMINAL PAIN UPPER [None]
  - OFF LABEL USE [None]
  - OCULAR ICTERUS [None]
